FAERS Safety Report 4421959-2 (Version None)
Quarter: 2004Q3

REPORT INFORMATION
  Report Type: 
  Country: None (occurrence: None)
  Receive Date: 20040809
  Receipt Date: 20040809
  Transmission Date: 20050211
  Serious: Yes (Other)
  Sender: FDA-Public Use
  Company Number: None

PATIENT
  Age: 56 Year
  Sex: Female
  Weight: 96.1626 kg

DRUGS (3)
  1. BENADRYL [Suspect]
     Indication: EYE PRURITUS
     Dosage: 1 TABLET, 2 HRS LATER 2 ND TABLET
     Dates: start: 20040720
  2. BENADRYL [Suspect]
     Indication: HYPERSENSITIVITY
     Dosage: 1 TABLET, 2 HRS LATER 2 ND TABLET
     Dates: start: 20040720
  3. BENADRYL [Suspect]
     Indication: RHINORRHOEA
     Dosage: 1 TABLET, 2 HRS LATER 2 ND TABLET
     Dates: start: 20040720

REACTIONS (8)
  - GENERALISED ERYTHEMA [None]
  - NAUSEA [None]
  - PHARMACEUTICAL PRODUCT COMPLAINT [None]
  - PHOTOPHOBIA [None]
  - PRURITUS [None]
  - PYREXIA [None]
  - RASH GENERALISED [None]
  - URTICARIA [None]
